FAERS Safety Report 12140419 (Version 1)
Quarter: 2016Q1

REPORT INFORMATION
  Report Type: Spontaneous
  Country: IT (occurrence: IT)
  Receive Date: 20160303
  Receipt Date: 20160303
  Transmission Date: 20160526
  Serious: Yes (Death)
  Sender: FDA-Public Use
  Company Number: IT-SA-2016SA041216

PATIENT
  Age: 70 Year
  Sex: Male

DRUGS (1)
  1. JEVTANA [Suspect]
     Active Substance: CABAZITAXEL
     Indication: PROSTATE CANCER METASTATIC
     Route: 042
     Dates: start: 20160212, end: 20160212

REACTIONS (3)
  - Confusional state [Fatal]
  - Acute kidney injury [Fatal]
  - Vomiting [Fatal]

NARRATIVE: CASE EVENT DATE: 20160213
